FAERS Safety Report 4632418-6 (Version None)
Quarter: 2005Q2

REPORT INFORMATION
  Report Type: 
  Country: None (occurrence: None)
  Receive Date: 20050411
  Receipt Date: 20050404
  Transmission Date: 20051028
  Serious: Yes (Death)
  Sender: FDA-Public Use
  Company Number: US-JNJFOC-20050401185

PATIENT
  Sex: Female
  Weight: 189.15 kg

DRUGS (12)
  1. FLEXERIL [Suspect]
     Indication: DRUG USE FOR UNKNOWN INDICATION
     Route: 049
  2. INSULIN [Concomitant]
  3. NEURONTIN [Concomitant]
  4. LASIX [Concomitant]
  5. WELLBUTRIN [Concomitant]
  6. ADVAIR DISKUS 100/50 [Concomitant]
  7. ADVAIR DISKUS 100/50 [Concomitant]
  8. ZESTORETIC [Concomitant]
  9. ZESTORETIC [Concomitant]
  10. DUONEB [Concomitant]
  11. DUONEB [Concomitant]
  12. ACTOS [Concomitant]

REACTIONS (1)
  - CHRONIC OBSTRUCTIVE PULMONARY DISEASE [None]
